FAERS Safety Report 4523422-7 (Version None)
Quarter: 2004Q4

REPORT INFORMATION
  Report Type: 
  Country: None (occurrence: None)
  Receive Date: 20041117
  Receipt Date: 20040629
  Transmission Date: 20050328
  Serious: Yes (Life-Threatening)
  Sender: FDA-Public Use
  Company Number: US-JNJFOC-20040704942

PATIENT
  Age: 72 Year
  Sex: Male

DRUGS (10)
  1. LEVOFLOXACIN [Suspect]
     Indication: RESPIRATORY DISORDER
     Dosage: 500 MG, 1 IN 24 HOUR INTRAVENOUS
     Route: 042
     Dates: start: 20020329, end: 20020405
  2. BENADRYL [Concomitant]
  3. CEPACOL (CETYLPYRIDINIUM CHLORIDE) [Concomitant]
  4. DIFLUCAN [Concomitant]
  5. DIGOXIN [Concomitant]
  6. LASIX [Concomitant]
  7. ROCEPHIN [Concomitant]
  8. TYLENOL [Concomitant]
  9. VICODIN [Concomitant]
  10. ZYLOPRIM [Concomitant]

REACTIONS (3)
  - ARRHYTHMIA SUPRAVENTRICULAR [None]
  - CARDIO-RESPIRATORY ARREST [None]
  - TORSADE DE POINTES [None]
